FAERS Safety Report 7816309-5 (Version None)
Quarter: 2011Q4

REPORT INFORMATION
  Report Type: 
  Country: None (occurrence: None)
  Receive Date: 20111017
  Receipt Date: 20111006
  Transmission Date: 20120403
  Serious: Yes (Hospitalization, Other)
  Sender: FDA-Public Use
  Company Number: CA-ALVOGEN-2011AL000071

PATIENT
  Age: 56 Year
  Sex: Female

DRUGS (8)
  1. MACROBID [Suspect]
     Route: 048
  2. AZATHIOPRINE [Suspect]
     Route: 065
  3. CALCIUM CARBONATE [Concomitant]
     Route: 048
  4. SULFAMETHOXAZOLE AND TRIMETHOPRIM [Suspect]
     Route: 048
  5. LYRICA [Concomitant]
     Route: 048
  6. ASPIRIN [Concomitant]
     Route: 048
  7. OXYCODONE AND ACETAMINOPHEN [Concomitant]
     Route: 048
  8. PREDNISONE [Concomitant]
     Route: 048

REACTIONS (7)
  - FATIGUE [None]
  - HEPATOTOXICITY [None]
  - JAUNDICE [None]
  - MALAISE [None]
  - FAECES PALE [None]
  - CHROMATURIA [None]
  - LIVER FUNCTION TEST ABNORMAL [None]
